FAERS Safety Report 8001204-1 (Version None)
Quarter: 2011Q4

REPORT INFORMATION
  Report Type: 
  Country: None (occurrence: None)
  Receive Date: 20111222
  Receipt Date: 20111219
  Transmission Date: 20120403
  Serious: Yes (Other)
  Sender: FDA-Public Use
  Company Number: JP-PFIZER INC-2011310653

PATIENT
  Age: 67 Year
  Sex: Male
  Weight: 40 kg

DRUGS (9)
  1. MAGNESIUM SULFATE [Concomitant]
     Dosage: UNK
     Route: 048
  2. POLARAMINE [Concomitant]
     Dosage: UNK
     Route: 048
  3. SOLITA-T 3G [Concomitant]
     Route: 041
  4. SODIUM CHLORIDE [Concomitant]
     Dosage: UNK
     Route: 041
  5. ZOSYN [Suspect]
     Indication: PNEUMONIA ASPIRATION
     Dosage: 4.5 G, 4X/DAY
     Route: 041
     Dates: start: 20110520, end: 20110523
  6. MUCOSOLATE [Concomitant]
     Dosage: UNK
     Route: 048
  7. LORAZEPAM [Concomitant]
     Dosage: UNK
     Route: 048
  8. SILECE [Concomitant]
     Dosage: UNK
     Route: 048
  9. MUCOTRON [Concomitant]
     Dosage: UNK
     Route: 048

REACTIONS (1)
  - RHABDOMYOLYSIS [None]
